FAERS Safety Report 4590919-3 (Version None)
Quarter: 2005Q1

REPORT INFORMATION
  Report Type: 
  Country: None (occurrence: None)
  Receive Date: 20050225
  Receipt Date: 20050128
  Transmission Date: 20050727
  Serious: No
  Sender: FDA-Public Use
  Company Number: BE-JNJFOC-20050200098

PATIENT
  Age: 39 Year
  Sex: Female

DRUGS (2)
  1. REMICADE [Suspect]
     Indication: ANKYLOSING SPONDYLITIS
     Route: 042
  2. ASPIRINE JUNIOR [Concomitant]

REACTIONS (5)
  - ANTINUCLEAR ANTIBODY POSITIVE [None]
  - COMPLEMENT FACTOR C3 DECREASED [None]
  - HEADACHE [None]
  - HEPATIC ENZYME INCREASED [None]
  - SKIN LESION [None]
